FAERS Safety Report 16893326 (Version 1)
Quarter: 2019Q4

REPORT INFORMATION
  Report Type: Report from Study
  Country: IT (occurrence: IT)
  Receive Date: 20191008
  Receipt Date: 20191008
  Transmission Date: 20200122
  Serious: Yes (Life-Threatening)
  Sender: FDA-Public Use
  Company Number: IT-TEVA-2019-IT-1117600

PATIENT
  Age: 50 Year

DRUGS (7)
  1. QUETIAPINE FUMARATE. [Suspect]
     Active Substance: QUETIAPINE FUMARATE
     Dosage: 1.5 G
     Route: 048
  2. DIAZEPAM. [Concomitant]
     Active Substance: DIAZEPAM
     Dosage: 5 MG
     Route: 048
  3. TOPIRAMATE. [Suspect]
     Active Substance: TOPIRAMATE
     Dosage: 3 G
     Route: 048
  4. TAVOR 2,5 MG COMPRESSE [Concomitant]
     Active Substance: LORAZEPAM
     Dosage: 2.5 MG
     Route: 048
  5. BRINTELLIX 5 MG FILM-COATED TABLETS [Concomitant]
     Dosage: 5 MG
     Route: 048
  6. LAMOTRIGINE. [Suspect]
     Active Substance: LAMOTRIGINE
     Dosage: 2.8 G
     Route: 048
  7. CITALOPRAM [Suspect]
     Active Substance: CITALOPRAM HYDROBROMIDE
     Dosage: 2.24 G
     Route: 048

REACTIONS (1)
  - Coma [Unknown]

NARRATIVE: CASE EVENT DATE: 20190717
